FAERS Safety Report 4310300-1 (Version None)
Quarter: 2004Q1

REPORT INFORMATION
  Report Type: 
  Country: None (occurrence: None)
  Receive Date: 20040301
  Receipt Date: 20040301
  Transmission Date: 20041129
  Serious: Yes (Other)
  Sender: FDA-Public Use
  Company Number: None

PATIENT
  Age: 41 Year
  Sex: Male
  Weight: 73.4827 kg

DRUGS (2)
  1. MIDODRINE HCL [Suspect]
     Indication: ORTHOSTATIC HYPOTENSION
     Dosage: 10 MG ONCE ORAL
     Route: 048
     Dates: start: 20031017, end: 20031017
  2. PROMETHAZINE [Suspect]
     Indication: NAUSEA
     Dosage: 25 MG 12 MINUTE IV
     Route: 042
     Dates: start: 20031017, end: 20031017

REACTIONS (4)
  - AKATHISIA [None]
  - ANXIETY [None]
  - DRUG INTERACTION [None]
  - PANIC DISORDER [None]
